FAERS Safety Report 25613781 (Version 1)
Quarter: 2025Q3

REPORT INFORMATION
  Report Type: Spontaneous
  Country: US (occurrence: US)
  Receive Date: 20250728
  Receipt Date: 20250728
  Transmission Date: 20251020
  Serious: No
  Sender: MERCK SHARP & DOHME LLC
  Company Number: US-009507513-2304024

PATIENT
  Age: 69 Year
  Sex: Female
  Weight: 92.8 kg

DRUGS (5)
  1. APREPITANT [Suspect]
     Active Substance: APREPITANT
     Route: 048
  2. GABAPENTIN [Concomitant]
     Active Substance: GABAPENTIN
     Route: 048
  3. MELOXICAM [Concomitant]
     Active Substance: MELOXICAM
     Route: 048
  4. SCOPOLAMINE [Concomitant]
     Active Substance: SCOPOLAMINE
  5. ACETAMINOPHEN [Concomitant]
     Active Substance: ACETAMINOPHEN
     Route: 048

REACTIONS (1)
  - Product use in unapproved indication [Unknown]
